FAERS Safety Report 19673116 (Version 1)
Quarter: 2021Q3

REPORT INFORMATION
  Report Type: Spontaneous
  Country: US (occurrence: US)
  Receive Date: 20210809
  Receipt Date: 20210809
  Transmission Date: 20211014
  Serious: Yes (Other)
  Sender: FDA-Public Use
  Company Number: US-ACCORD-149648

PATIENT
  Age: 56 Year
  Sex: Female
  Weight: 113.4 kg

DRUGS (8)
  1. CYTOXAN [Suspect]
     Active Substance: CYCLOPHOSPHAMIDE
     Indication: BREAST CANCER
     Dates: start: 20141113, end: 20150226
  2. TYLENOL EXTRA STRENGTH [Concomitant]
     Active Substance: ACETAMINOPHEN
     Dates: start: 2014
  3. DOCETAXEL ACCORD [Suspect]
     Active Substance: DOCETAXEL
     Indication: BREAST CANCER
     Dosage: DOSE: 159.8 MG ? 163.5 MG
     Dates: start: 20141113, end: 20150226
  4. DOXORUBICIN [Suspect]
     Active Substance: DOXORUBICIN
     Indication: BREAST CANCER
     Dates: start: 20141113, end: 20150226
  5. LISINOPRIL. [Concomitant]
     Active Substance: LISINOPRIL
     Dates: start: 201202
  6. NEULASTA [Concomitant]
     Active Substance: PEGFILGRASTIM
  7. ACICLOVIR [Concomitant]
     Active Substance: ACYCLOVIR
  8. CENTRUM [Concomitant]
     Active Substance: VITAMINS
     Dates: start: 201408

REACTIONS (1)
  - Alopecia [Not Recovered/Not Resolved]

NARRATIVE: CASE EVENT DATE: 20150410
